FAERS Safety Report 21513493 (Version 1)
Quarter: 2022Q4

REPORT INFORMATION
  Report Type: Spontaneous
  Country: US (occurrence: None)
  Receive Date: 20221026
  Receipt Date: 20221026
  Transmission Date: 20230112
  Serious: Yes (Hospitalization)
  Sender: FDA-Public Use
  Company Number: None

PATIENT
  Age: 53 Year
  Sex: Male

DRUGS (1)
  1. OPSUMIT [Suspect]
     Active Substance: MACITENTAN
     Indication: Pulmonary arterial hypertension
     Dosage: FREQUENCY : DAILY;?
     Route: 048
     Dates: start: 20220927

REACTIONS (7)
  - Abdominal pain [None]
  - Pyrexia [None]
  - Leukocytosis [None]
  - Blood lactic acid increased [None]
  - Infection [None]
  - Liver function test increased [None]
  - Staphylococcus test positive [None]

NARRATIVE: CASE EVENT DATE: 20221020
